FAERS Safety Report 19195510 (Version 2)
Quarter: 2021Q3

REPORT INFORMATION
  Report Type: Spontaneous
  Country: US (occurrence: US)
  Receive Date: 20210429
  Receipt Date: 20210824
  Transmission Date: 20211014
  Serious: Yes (Hospitalization)
  Sender: FDA-Public Use
  Company Number: US-GW PHARMA-202104USGW02035

PATIENT

DRUGS (2)
  1. EPIDIOLEX [Suspect]
     Active Substance: CANNABIDIOL
     Indication: LENNOX-GASTAUT SYNDROME
     Dosage: 220 MILLIGRAM
     Route: 048
     Dates: start: 20190121, end: 2021
  2. EPIDIOLEX [Suspect]
     Active Substance: CANNABIDIOL
     Dosage: 370 MILLIGRAM, BID (BEING WEANED DOWN AND OFF OF MEDICATION)
     Route: 048
     Dates: start: 20210211, end: 20210817

REACTIONS (2)
  - Seizure [Unknown]
  - Reaction to excipient [Unknown]

NARRATIVE: CASE EVENT DATE: 2021
